FAERS Safety Report 11066208 (Version 1)
Quarter: 2015Q2

REPORT INFORMATION
  Report Type: Spontaneous
  Country: PL (occurrence: None)
  Receive Date: 20150423
  Receipt Date: 20150423
  Transmission Date: 20150821
  Serious: Yes (Other)
  Sender: FDA-Public Use
  Company Number: PL-2015VAL000271

PATIENT
  Age: 57 Year
  Sex: Male

DRUGS (7)
  1. LACIDIPINE [Suspect]
     Active Substance: LACIDIPINE
     Indication: HYPERTENSION
  2. ASPIRIN. [Suspect]
     Active Substance: ASPIRIN
     Indication: PRODUCT USED FOR UNKNOWN INDICATION
  3. SIMVASTATIN (SIMVASTATIN) [Suspect]
     Active Substance: SIMVASTATIN
     Indication: PRODUCT USED FOR UNKNOWN INDICATION
  4. INDAPAMIDE (INDAPAMIDE) [Suspect]
     Active Substance: INDAPAMIDE
     Indication: HYPERTENSION
  5. METOPROLOL TARTRATE. [Suspect]
     Active Substance: METOPROLOL TARTRATE
     Indication: HYPERTENSION
  6. RAMIPRIL (RAMIPRIL) [Suspect]
     Active Substance: RAMIPRIL
     Indication: HYPERTENSION
  7. POTASSIUM (POTASSIUM) [Suspect]
     Active Substance: POTASSIUM
     Indication: PRODUCT USED FOR UNKNOWN INDICATION

REACTIONS (6)
  - Coronary artery stenosis [None]
  - Retinopathy hypertensive [None]
  - Hypertension [None]
  - Arteriosclerosis [None]
  - Renal artery stenosis [None]
  - Left ventricular hypertrophy [None]
